FAERS Safety Report 5450998-8 (Version None)
Quarter: 2007Q3

REPORT INFORMATION
  Report Type: 
  Country: None (occurrence: None)
  Receive Date: 20070913
  Receipt Date: 20070903
  Transmission Date: 20080115
  Serious: Yes (Life-Threatening, Other)
  Sender: FDA-Public Use
  Company Number: JP-JNJFOC-20070802641

PATIENT
  Age: 62 Year
  Sex: Male
  Weight: 77 kg

DRUGS (16)
  1. ITRIZOLE [Suspect]
     Route: 041
  2. ITRIZOLE [Suspect]
     Indication: SYSTEMIC MYCOSIS
     Route: 041
  3. SEPAMIT [Interacting]
     Indication: HYPERTENSION
     Route: 048
  4. DIGOSIN [Interacting]
     Indication: DRUG USE FOR UNKNOWN INDICATION
     Route: 048
  5. ALLOPURINOL [Concomitant]
     Indication: HYPERURICAEMIA
     Route: 048
  6. CALSLOT [Concomitant]
     Indication: HYPERTENSION
     Route: 048
  7. MEYLON [Concomitant]
     Route: 065
  8. FAMOTIDINE [Concomitant]
     Indication: GASTRITIS
     Route: 048
  9. MAGNESIUM OXIDE [Concomitant]
     Indication: CONSTIPATION
     Route: 048
  10. KCL CORRECTIVE [Concomitant]
     Route: 065
  11. RYTHMODAN [Concomitant]
     Indication: ARRHYTHMIA SUPRAVENTRICULAR
     Route: 048
  12. HUMULIN 70/30 [Concomitant]
     Route: 065
  13. FULCALIQ 3 [Concomitant]
     Route: 065
  14. NEUTROGIN [Concomitant]
     Indication: NEUTROPENIA
     Route: 058
  15. CEFEPIME DIHYDROCHLORIDE [Concomitant]
     Indication: FEBRILE NEUTROPENIA
     Route: 042
  16. MORPHINE HCL ELIXIR [Concomitant]
     Indication: CANCER PAIN
     Route: 042

REACTIONS (4)
  - DRUG INTERACTION [None]
  - ELECTROCARDIOGRAM R ON T PHENOMENON [None]
  - LONG QT SYNDROME [None]
  - VENTRICULAR TACHYCARDIA [None]
